FAERS Safety Report 5744710-2 (Version None)
Quarter: 2008Q2

REPORT INFORMATION
  Report Type: 
  Country: None (occurrence: None)
  Receive Date: 20080520
  Receipt Date: 20080509
  Transmission Date: 20081010
  Serious: Yes (Hospitalization)
  Sender: FDA-Public Use
  Company Number: ES-PFIZER INC-2006102376

PATIENT
  Sex: Female

DRUGS (5)
  1. SU-011,248 [Suspect]
     Indication: METASTATIC RENAL CELL CARCINOMA
     Route: 048
  2. SU-011,248 [Suspect]
     Route: 048
  3. OMEPRAZOLE [Concomitant]
     Route: 048
  4. MICARDIS HCT [Concomitant]
     Route: 048
  5. IBUPROFEN [Concomitant]
     Route: 048
     Dates: start: 20060628

REACTIONS (3)
  - FALL [None]
  - HAEMATOMA [None]
  - SYNCOPE [None]
